FAERS Safety Report 8581172 (Version 5)
Quarter: 2013Q2

REPORT INFORMATION
  Report Type: Spontaneous
  Country: US (occurrence: US)
  Receive Date: 20120525
  Receipt Date: 20130430
  Transmission Date: 20140414
  Serious: Yes (Hospitalization, Disabling, Other)
  Sender: FDA-Public Use
  Company Number: US-009507513-1205USA02863

PATIENT
  Sex: Female
  Weight: 58.96 kg

DRUGS (3)
  1. FOSAMAX [Suspect]
     Indication: OSTEOPOROSIS
     Dosage: UNK
     Route: 048
     Dates: start: 2003, end: 2004
  2. RECLAST [Suspect]
     Indication: OSTEOPOROSIS
     Dosage: UNK
     Route: 042
     Dates: start: 2009, end: 2011
  3. BONIVA [Suspect]
     Indication: OSTEOPOROSIS
     Dosage: 150 MG, UNK
     Route: 048
     Dates: start: 200602, end: 200808

REACTIONS (50)
  - Femur fracture [Not Recovered/Not Resolved]
  - Osteoporosis [Not Recovered/Not Resolved]
  - Stress fracture [Not Recovered/Not Resolved]
  - Low turnover osteopathy [Not Recovered/Not Resolved]
  - Femur fracture [Not Recovered/Not Resolved]
  - Cervix carcinoma [Unknown]
  - Loss of consciousness [Unknown]
  - Intramedullary rod insertion [Unknown]
  - Radical hysterectomy [Unknown]
  - Osteoarthritis [Unknown]
  - Pain [Not Recovered/Not Resolved]
  - Spinal disorder [Unknown]
  - Osteonecrosis of jaw [Unknown]
  - Vitamin D deficiency [Unknown]
  - Dental caries [Unknown]
  - Gingival disorder [Unknown]
  - Calcium deficiency [Unknown]
  - Abscess [Unknown]
  - Depression [Unknown]
  - Anxiety [Unknown]
  - Adverse drug reaction [Unknown]
  - Cyst [Unknown]
  - Synovitis [Unknown]
  - Road traffic accident [Unknown]
  - Patella fracture [Unknown]
  - Fall [Unknown]
  - Neuropathy peripheral [Unknown]
  - Atypical pneumonia [Unknown]
  - Cyst [Unknown]
  - Raynaud^s phenomenon [Unknown]
  - Tonic clonic movements [Unknown]
  - Vision blurred [Unknown]
  - Vision blurred [Unknown]
  - Bone loss [Unknown]
  - Tooth extraction [Unknown]
  - Wrist fracture [Unknown]
  - Sinus operation [Unknown]
  - Salpingo-oophorectomy bilateral [Unknown]
  - Transfusion [Unknown]
  - Intervertebral disc protrusion [Unknown]
  - Bronchitis [Unknown]
  - Dental care [Unknown]
  - Periodontal operation [Unknown]
  - Bacterial infection [Unknown]
  - Gastrooesophageal reflux disease [Unknown]
  - Abdominal discomfort [Unknown]
  - Local swelling [Unknown]
  - Gastritis [Unknown]
  - Joint swelling [Unknown]
  - Musculoskeletal discomfort [Unknown]
